FAERS Safety Report 17693825 (Version 1)
Quarter: 2020Q2

REPORT INFORMATION
  Report Type: Spontaneous
  Country: US (occurrence: US)
  Receive Date: 20200422
  Receipt Date: 20200422
  Transmission Date: 20200714
  Serious: No
  Sender: FDA-Public Use
  Company Number: US-ASTRAZENECA-2020SE44073

PATIENT
  Age: 918 Month
  Sex: Male
  Weight: 79.4 kg

DRUGS (1)
  1. BRILINTA [Suspect]
     Active Substance: TICAGRELOR
     Indication: STENT PLACEMENT
     Route: 048

REACTIONS (3)
  - Contusion [Recovered/Resolved]
  - Ear disorder [Unknown]
  - Body height decreased [Unknown]

NARRATIVE: CASE EVENT DATE: 202003
